FAERS Safety Report 9714094 (Version 1)
Quarter: 2013Q4

REPORT INFORMATION
  Report Type: Spontaneous
  Country: US (occurrence: US)
  Receive Date: 20131126
  Receipt Date: 20131126
  Transmission Date: 20140711
  Serious: No
  Sender: FDA-Public Use
  Company Number: US-GILEAD-2008-0018814

PATIENT
  Age: 67 Year
  Sex: Female

DRUGS (12)
  1. LETAIRIS [Suspect]
     Indication: PULMONARY ARTERIAL HYPERTENSION
     Route: 048
  2. LETAIRIS [Suspect]
     Route: 048
     Dates: start: 20080709, end: 20081021
  3. LETAIRIS [Suspect]
     Route: 048
     Dates: start: 200810
  4. ASPIRIN [Concomitant]
     Route: 048
  5. PREDNISONE [Concomitant]
     Route: 048
  6. LIPITOR [Concomitant]
     Route: 048
  7. METOPROLOL ER [Concomitant]
     Route: 048
  8. GABAPENTIN [Concomitant]
     Route: 048
  9. PLAVIX [Concomitant]
     Route: 048
  10. NEXIUM [Concomitant]
     Route: 048
  11. REVATIO [Concomitant]
     Route: 048
  12. FUROSEMIDE [Concomitant]
     Route: 048

REACTIONS (1)
  - Fluid retention [Not Recovered/Not Resolved]
